FAERS Safety Report 9432455 (Version 1)
Quarter: 2013Q3

REPORT INFORMATION
  Report Type: Spontaneous
  Country: US (occurrence: None)
  Receive Date: 20130730
  Receipt Date: 20130730
  Transmission Date: 20140515
  Serious: No
  Sender: FDA-Public Use
  Company Number: None

PATIENT
  Sex: Female

DRUGS (1)
  1. LEVOTHYROXINE [Suspect]
     Indication: HYPOTHYROIDISM
     Dates: start: 2007

REACTIONS (6)
  - Fatigue [None]
  - Alopecia [None]
  - Somnolence [None]
  - Dry skin [None]
  - Nausea [None]
  - Libido decreased [None]
